FAERS Safety Report 9680278 (Version 1)
Quarter: 2013Q4

REPORT INFORMATION
  Report Type: Spontaneous
  Country: CA (occurrence: CA)
  Receive Date: 20131111
  Receipt Date: 20131111
  Transmission Date: 20140711
  Serious: Yes (Other)
  Sender: FDA-Public Use
  Company Number: CA-BRISTOL-MYERS SQUIBB COMPANY-19772383

PATIENT
  Age: 70 Year
  Sex: Female

DRUGS (2)
  1. ELIQUIS [Suspect]
     Indication: ATRIAL FIBRILLATION
     Dosage: 2 TABLETS
  2. ELIQUIS [Suspect]
     Indication: CEREBROVASCULAR ACCIDENT
     Dosage: 2 TABLETS

REACTIONS (2)
  - Embolism [Recovered/Resolved]
  - Mitral valve stenosis [Unknown]
